FAERS Safety Report 15361880 (Version 20)
Quarter: 2023Q1

REPORT INFORMATION
  Report Type: Spontaneous
  Country: GB (occurrence: GB)
  Receive Date: 20180907
  Receipt Date: 20230220
  Transmission Date: 20230418
  Serious: Yes (Death, Hospitalization, Congenital Anomaly, Other)
  Sender: FDA-Public Use
  Company Number: PHHY2018GB085930

PATIENT
  Age: 3 Month
  Sex: Male

DRUGS (80)
  1. METFORMIN [Suspect]
     Active Substance: METFORMIN HYDROCHLORIDE
     Indication: Foetal exposure during pregnancy
     Dosage: MATERNAL DOSE: UNK
     Route: 064
  2. METFORMIN [Suspect]
     Active Substance: METFORMIN HYDROCHLORIDE
     Dosage: UNK, (MATERNAL DOSE: 400 MG, QD)
     Route: 064
     Dates: start: 20090101, end: 20100610
  3. METFORMIN [Suspect]
     Active Substance: METFORMIN HYDROCHLORIDE
     Dosage: UNK, (MATERNAL DOSE: UNKNOWN)
     Route: 064
  4. EFAVIRENZ [Suspect]
     Active Substance: EFAVIRENZ
     Indication: Foetal exposure during pregnancy
     Dosage: MATERNAL DOSE: 1 DOSAGE FORM, QD
     Route: 064
     Dates: start: 20171006
  5. EFAVIRENZ [Suspect]
     Active Substance: EFAVIRENZ
     Dosage: MATERNAL DOSE: 1 DOSAGE FORM, QD
     Route: 064
  6. EFAVIRENZ [Suspect]
     Active Substance: EFAVIRENZ
     Dosage: MATERNAL DOSE: 1 UG/LITRE, QD (1 TABLET/CAPSULE)
     Route: 064
     Dates: start: 20171006
  7. EFAVIRENZ [Suspect]
     Active Substance: EFAVIRENZ
     Dosage: UNK, MATERNAL DOSE: 1 UG/LITRE, QD (1 TABLET/CAPSULE)
     Route: 064
  8. EFAVIRENZ [Suspect]
     Active Substance: EFAVIRENZ
     Dosage: 1 DOSAGE FORM, QD (1 FILM-COATED TABLET)
     Route: 064
  9. EMTRICITABINE\TENOFOVIR DISOPROXIL [Suspect]
     Active Substance: EMTRICITABINE\TENOFOVIR DISOPROXIL
     Indication: Foetal exposure during pregnancy
     Dosage: MATERNAL DOSE: UNK
     Route: 064
  10. EMTRICITABINE\TENOFOVIR DISOPROXIL [Suspect]
     Active Substance: EMTRICITABINE\TENOFOVIR DISOPROXIL
     Dosage: MATERNAL DOSE: 1 DOSAGE FORM, QD (1 TABLET/CAPSULE)
     Route: 064
     Dates: start: 20171006
  11. EMTRICITABINE\TENOFOVIR DISOPROXIL [Suspect]
     Active Substance: EMTRICITABINE\TENOFOVIR DISOPROXIL
     Dosage: MATERNAL DOSE: UNK, UNK, QD
     Route: 064
     Dates: start: 20180205
  12. EMTRICITABINE\TENOFOVIR DISOPROXIL [Suspect]
     Active Substance: EMTRICITABINE\TENOFOVIR DISOPROXIL
     Dosage: MATERNAL DOSE: 1 DOSAGE FORM, QD (1 TABLET/CAPSULE)
     Route: 064
     Dates: start: 20180205
  13. EMTRICITABINE\TENOFOVIR DISOPROXIL [Suspect]
     Active Substance: EMTRICITABINE\TENOFOVIR DISOPROXIL
     Dosage: MATERNAL DOSE: 1 DOSAGE FORM, QD
     Route: 064
  14. EMTRICITABINE\TENOFOVIR DISOPROXIL [Suspect]
     Active Substance: EMTRICITABINE\TENOFOVIR DISOPROXIL
     Dosage: UNK
     Route: 064
  15. EMTRICITABINE\TENOFOVIR DISOPROXIL [Suspect]
     Active Substance: EMTRICITABINE\TENOFOVIR DISOPROXIL
     Dosage: MATERNAL DOSE: 1 DOSAGE FORM, QD
     Route: 064
     Dates: start: 20170610
  16. LABETALOL [Suspect]
     Active Substance: LABETALOL\LABETALOL HYDROCHLORIDE
     Indication: Foetal exposure during pregnancy
     Dosage: MATERNAL DOSE: UNK
     Route: 064
  17. LABETALOL [Suspect]
     Active Substance: LABETALOL\LABETALOL HYDROCHLORIDE
     Dosage: 300 MG, (MATERNAL DOSE: 300 MG)
     Route: 064
     Dates: start: 20090101
  18. LABETALOL [Suspect]
     Active Substance: LABETALOL\LABETALOL HYDROCHLORIDE
     Dosage: UNK
     Route: 064
  19. LABETALOL [Suspect]
     Active Substance: LABETALOL\LABETALOL HYDROCHLORIDE
     Dosage: MATERNAL DOSE: 300 MG
     Route: 065
     Dates: start: 20100610
  20. LABETALOL [Suspect]
     Active Substance: LABETALOL\LABETALOL HYDROCHLORIDE
     Dosage: UNK
     Route: 064
  21. LABETALOL [Suspect]
     Active Substance: LABETALOL\LABETALOL HYDROCHLORIDE
     Dosage: UNK
     Route: 064
  22. RITONAVIR [Suspect]
     Active Substance: RITONAVIR
     Indication: Foetal exposure during pregnancy
     Dosage: UNK, MATERNAL DOSE: UNK
     Route: 064
     Dates: start: 20100610
  23. RITONAVIR [Suspect]
     Active Substance: RITONAVIR
     Dosage: UNK, MATERNAL DOSE: UNK
     Route: 064
  24. LAMIVUDINE [Suspect]
     Active Substance: LAMIVUDINE
     Indication: Foetal exposure during pregnancy
     Dosage: 300 MG, QD
     Route: 064
     Dates: start: 20090101, end: 20100610
  25. LAMIVUDINE [Suspect]
     Active Substance: LAMIVUDINE
     Dosage: MATERNAL DOSE: UNK
     Route: 064
     Dates: start: 20100610, end: 20100610
  26. NEVIRAPINE [Suspect]
     Active Substance: NEVIRAPINE
     Indication: Foetal exposure during pregnancy
     Dosage: 400 MG, QD, (MATERNAL DOSE:400 MG, QD)
     Route: 064
     Dates: start: 20090101, end: 20100610
  27. NEVIRAPINE [Suspect]
     Active Substance: NEVIRAPINE
     Dosage: 400 MG, QD
     Route: 064
  28. NEVIRAPINE [Suspect]
     Active Substance: NEVIRAPINE
     Dosage: UNK
     Route: 064
  29. FOLIC ACID [Suspect]
     Active Substance: FOLIC ACID
     Indication: Foetal exposure during pregnancy
     Dosage: MATERNAL DOSE: UNK
     Route: 064
  30. FOLIC ACID [Suspect]
     Active Substance: FOLIC ACID
     Dosage: MATERNAL DOSE: UNK
     Route: 064
  31. FOLIC ACID [Suspect]
     Active Substance: FOLIC ACID
     Dosage: MATERNAL DOSE: 1 DOSAGE FORM, QD
     Route: 064
  32. FOLIC ACID [Suspect]
     Active Substance: FOLIC ACID
     Dosage: 1 DOSAGE FORM, QD (MATERNAL DOSE)
     Route: 064
  33. FOLIC ACID [Suspect]
     Active Substance: FOLIC ACID
     Dosage: UNK
     Route: 064
  34. FOLIC ACID [Suspect]
     Active Substance: FOLIC ACID
     Dosage: UNK
     Route: 065
  35. FOLIC ACID [Suspect]
     Active Substance: FOLIC ACID
     Dosage: MATERNAL DOSE: UNK
     Route: 064
  36. FOLIC ACID [Suspect]
     Active Substance: FOLIC ACID
     Dosage: UNK
     Route: 064
  37. TENOFOVIR [Suspect]
     Active Substance: TENOFOVIR
     Indication: Foetal exposure during pregnancy
     Dosage: MATERNAL DOSE: 300 MG, QD
     Route: 064
     Dates: start: 20100610
  38. INSULIN ASPART [Suspect]
     Active Substance: INSULIN ASPART
     Indication: Foetal exposure during pregnancy
     Dosage: UNK, MATERNAL DOSE: UNK
     Route: 064
  39. INSULIN ASPART [Suspect]
     Active Substance: INSULIN ASPART
     Dosage: UNK, MATERNAL DOSE: UNKNOWN
     Route: 064
  40. TRUVADA [Suspect]
     Active Substance: EMTRICITABINE\TENOFOVIR DISOPROXIL FUMARATE
     Indication: Foetal exposure during pregnancy
     Dosage: MATERNAL DOSE: 1 DF, QD
     Route: 064
     Dates: start: 20171006
  41. TRUVADA [Suspect]
     Active Substance: EMTRICITABINE\TENOFOVIR DISOPROXIL FUMARATE
     Dosage: MATERNAL DOSE: 1 DF, QD
     Route: 064
     Dates: start: 20180205
  42. TRUVADA [Suspect]
     Active Substance: EMTRICITABINE\TENOFOVIR DISOPROXIL FUMARATE
     Dosage: MATERNAL DOSE: 1 DOSAGE FORM, QD (1 DOSAGE FORM, QD;1 TABLET/CAPSULE, QD)
     Route: 064
  43. TRUVADA [Suspect]
     Active Substance: EMTRICITABINE\TENOFOVIR DISOPROXIL FUMARATE
     Dosage: MATERNAL DOSE: 1 DOSAGE FORM, QD
     Route: 064
     Dates: start: 20171006, end: 20180205
  44. TRUVADA [Suspect]
     Active Substance: EMTRICITABINE\TENOFOVIR DISOPROXIL FUMARATE
     Dosage: MATERNAL DOSE: 1 DOSAGE FORM, QD
     Route: 064
  45. TRUVADA [Suspect]
     Active Substance: EMTRICITABINE\TENOFOVIR DISOPROXIL FUMARATE
     Dosage: MATERNAL DOSE: 1 DOSAGE FORM, QD
     Route: 064
  46. FOLATE SODIUM [Suspect]
     Active Substance: FOLATE SODIUM
     Indication: Foetal exposure during pregnancy
     Dosage: MATERNAL DOSE: UNK
     Route: 064
  47. LOPINAVIR\RITONAVIR [Suspect]
     Active Substance: LOPINAVIR\RITONAVIR
     Indication: Foetal exposure during pregnancy
     Dosage: MATERNAL DOSE: 1 DOSAGE FORM, QD
     Route: 064
     Dates: start: 20100610
  48. LOPINAVIR\RITONAVIR [Suspect]
     Active Substance: LOPINAVIR\RITONAVIR
     Dosage: MATERNAL DOSE: UNK
     Route: 064
     Dates: start: 20100610
  49. LOPINAVIR\RITONAVIR [Suspect]
     Active Substance: LOPINAVIR\RITONAVIR
     Dosage: MATERNAL DOSE: UNK,QD
     Route: 064
     Dates: start: 20100610
  50. LOPINAVIR\RITONAVIR [Suspect]
     Active Substance: LOPINAVIR\RITONAVIR
     Dosage: MATERNAL DOSE: UNK (PATIENT WAS NOT TAKING MEDICINE AT CONCEPTION)
     Route: 064
     Dates: start: 20100610
  51. LOPINAVIR\RITONAVIR [Suspect]
     Active Substance: LOPINAVIR\RITONAVIR
     Dosage: MATERNAL DOSE: UNK
     Route: 064
     Dates: end: 20100610
  52. LOPINAVIR\RITONAVIR [Suspect]
     Active Substance: LOPINAVIR\RITONAVIR
     Dosage: MATERNAL DOSE: UNK
     Route: 064
  53. LOPINAVIR\RITONAVIR [Suspect]
     Active Substance: LOPINAVIR\RITONAVIR
     Dosage: MATERNAL DOSE: UNK
     Route: 064
  54. LOPINAVIR\RITONAVIR [Suspect]
     Active Substance: LOPINAVIR\RITONAVIR
     Dosage: MATERNAL DOSE: UNK
     Route: 064
  55. VITAMIN B12 [Suspect]
     Active Substance: CYANOCOBALAMIN
     Indication: Foetal exposure during pregnancy
     Dosage: MATERNAL DOSE: UNK
     Route: 064
     Dates: start: 20100610
  56. VITAMIN B12 [Suspect]
     Active Substance: CYANOCOBALAMIN
     Dosage: UNK
     Route: 065
  57. INSULIN ASPART [Suspect]
     Active Substance: INSULIN ASPART
     Indication: Foetal exposure during pregnancy
     Dosage: MATERNAL DOSE: UNK
     Route: 064
  58. INSULIN ASPART [Suspect]
     Active Substance: INSULIN ASPART
     Route: 064
  59. ISENTRESS [Suspect]
     Active Substance: RALTEGRAVIR POTASSIUM
     Indication: Foetal exposure during pregnancy
     Dosage: UNK, (MATERNAL DOSE: 3200 MG, QD (800 MILLIGRAM, QID))
     Route: 064
     Dates: start: 20100610
  60. ISENTRESS [Suspect]
     Active Substance: RALTEGRAVIR POTASSIUM
     Dosage: UNK, (MATERNAL DOSE: 3200 MG, QD (800 MILLIGRAM, QID))
     Route: 064
  61. ISENTRESS [Suspect]
     Active Substance: RALTEGRAVIR POTASSIUM
     Dosage: 800 MG, Q6H
     Route: 064
  62. ISENTRESS [Suspect]
     Active Substance: RALTEGRAVIR POTASSIUM
     Dosage: 3200 MG, QD (800 MILLIGRAM, QID)
     Route: 064
  63. KALETRA [Suspect]
     Active Substance: LOPINAVIR\RITONAVIR
     Indication: Foetal exposure during pregnancy
     Dosage: UNK
     Route: 064
     Dates: start: 20100610
  64. KALETRA [Suspect]
     Active Substance: LOPINAVIR\RITONAVIR
     Dosage: UNK, (MATERNAL DOSE: UNKNOWN)
     Route: 064
  65. EFAVIRENZ [Suspect]
     Active Substance: EFAVIRENZ
     Indication: Foetal exposure during pregnancy
     Dosage: MATERNAL DOSE: 1 DOSAGE FORM, QD (1 TABLET/CAPSULE)
     Route: 064
     Dates: start: 20171006
  66. EFAVIRENZ [Suspect]
     Active Substance: EFAVIRENZ
     Dosage: MATERNAL DOSE: 1 DOSAGE FORM, QD
     Route: 064
  67. EFAVIRENZ [Suspect]
     Active Substance: EFAVIRENZ
     Dosage: 1 DOSAGE FORM, QD
     Route: 064
     Dates: start: 20171006, end: 20180205
  68. EFAVIRENZ [Suspect]
     Active Substance: EFAVIRENZ
     Dosage: UNK, (MATERNAL DOSE: 1 DOSAGE FORM, QD (1 TABLET/CAPSULE, DAILY)
     Route: 064
  69. EFAVIRENZ [Suspect]
     Active Substance: EFAVIRENZ
     Dosage: UNK UNK, QD
     Route: 064
  70. ZIDOVUDINE [Suspect]
     Active Substance: ZIDOVUDINE
     Indication: Foetal exposure during pregnancy
     Dosage: MATERNAL DOSE: 600 MG, QD
     Route: 064
     Dates: start: 20090110, end: 20100610
  71. ZIDOVUDINE [Suspect]
     Active Substance: ZIDOVUDINE
     Dosage: MATERNAL DOSE: 600 MG, QD
     Route: 064
  72. ZIDOVUDINE [Suspect]
     Active Substance: ZIDOVUDINE
     Dosage: UNK, (MATERNAL DOSE: 800 MG, QD)
     Route: 064
  73. ZIDOVUDINE [Suspect]
     Active Substance: ZIDOVUDINE
     Dosage: 800 MILLIGRAM, QD
     Route: 064
     Dates: start: 20100610, end: 20100610
  74. ZIDOVUDINE [Suspect]
     Active Substance: ZIDOVUDINE
     Dosage: UNK, (MATERNAL DOSE: 600 MG, QD )
     Route: 064
  75. CYANOCOBALAMIN [Suspect]
     Active Substance: CYANOCOBALAMIN
     Indication: Foetal exposure during pregnancy
     Dosage: UNK
     Route: 064
     Dates: start: 20100610
  76. LOPINAVIR [Suspect]
     Active Substance: LOPINAVIR
     Indication: Foetal exposure during pregnancy
     Dosage: UNK
     Route: 064
     Dates: start: 20100610
  77. LOPINAVIR [Suspect]
     Active Substance: LOPINAVIR
     Dosage: UNK, (MATERNAL DOSE: UNK)
     Route: 064
     Dates: start: 20100610, end: 20100610
  78. LOPINAVIR\RITONAVIR [Suspect]
     Active Substance: LOPINAVIR\RITONAVIR
     Indication: Foetal exposure during pregnancy
     Dosage: UNK
     Route: 064
     Dates: start: 20100610
  79. FOLIC ACID [Suspect]
     Active Substance: FOLIC ACID
     Indication: Foetal exposure during pregnancy
     Dosage: MATERNAL DOSE: 1 DOSAGE FORM, QD (QD [1 TABLET/CAPSULE])
     Route: 064
  80. COBAMAMIDE [Suspect]
     Active Substance: COBAMAMIDE
     Indication: Foetal exposure during pregnancy
     Dosage: MATERNAL DOSE: UNK
     Route: 064

REACTIONS (9)
  - Hydrops foetalis [Fatal]
  - Trisomy 18 [Fatal]
  - Cleft lip and palate [Fatal]
  - Ultrasound antenatal screen [Fatal]
  - Foetal exposure during pregnancy [Fatal]
  - Alanine aminotransferase increased [Fatal]
  - Aspartate aminotransferase increased [Fatal]
  - Intentional product use issue [Fatal]
  - Off label use [Fatal]

NARRATIVE: CASE EVENT DATE: 20171006
